FAERS Safety Report 18308295 (Version 1)
Quarter: 2020Q3

REPORT INFORMATION
  Report Type: Spontaneous
  Country: DE (occurrence: DE)
  Receive Date: 20200924
  Receipt Date: 20200924
  Transmission Date: 20201103
  Serious: Yes (Hospitalization)
  Sender: FDA-Public Use
  Company Number: DE-TEVA-2020-DE-1829984

PATIENT
  Age: 13 Year
  Sex: Female
  Weight: 65 kg

DRUGS (3)
  1. BUSCOPAN 10MG [Suspect]
     Active Substance: BUTYLSCOPOLAMINE BROMIDE
     Indication: SUICIDAL IDEATION
     Dosage: DAILY DOSE: 150 MG MILLGRAM(S) EVERY DAYS 15 SEPARATED DOSES, UNIT DOSE : 150 MILLIGRAM
     Route: 048
     Dates: end: 20190406
  2. IBUPROFEN 400MG [Suspect]
     Active Substance: IBUPROFEN
     Indication: SUICIDAL IDEATION
     Dosage: DAILY DOSE: 2000 MG MILLGRAM(S) EVERY DAYS 5 SEPARATED DOSES, UNIT DOSE : 2000 MILLIGRAM
     Route: 048
     Dates: end: 20190404
  3. PARACETAMOL 500MG [Suspect]
     Active Substance: ACETAMINOPHEN
     Indication: SUICIDAL IDEATION
     Dosage: DAILY DOSE: 2000 MG MILLGRAM(S) EVERY DAYS 4 SEPARATED DOSES, UNIT DOSE : 2000 MILLIGRAM
     Route: 048
     Dates: end: 20190404

REACTIONS (2)
  - Toxicity to various agents [Unknown]
  - Intentional overdose [Unknown]

NARRATIVE: CASE EVENT DATE: 20190406
